FAERS Safety Report 4331842-9 (Version None)
Quarter: 2004Q2

REPORT INFORMATION
  Report Type: 
  Country: None (occurrence: None)
  Receive Date: 20040405
  Receipt Date: 20031113
  Transmission Date: 20050107
  Serious: No
  Sender: FDA-Public Use
  Company Number: US-GLAXOSMITHKLINE-A0439646A

PATIENT
  Age: 2 Year
  Sex: Male
  Weight: 11.8 kg

DRUGS (3)
  1. FLOVENT [Suspect]
     Indication: ASTHMA
     Dosage: 44MCG TWICE PER DAY
     Route: 055
     Dates: start: 20031112
  2. ALBUTEROL [Concomitant]
  3. TRIAMINIC SRT [Concomitant]

REACTIONS (4)
  - ASTHMA [None]
  - RASH [None]
  - URTICARIA [None]
  - VOMITING [None]
